FAERS Safety Report 9798582 (Version 1)
Quarter: 2013Q4

REPORT INFORMATION
  Report Type: Spontaneous
  Country: KR (occurrence: None)
  Receive Date: 20131230
  Receipt Date: 20131230
  Transmission Date: 20140711
  Serious: Yes (Other)
  Sender: FDA-Public Use
  Company Number: 2013P1021560

PATIENT
  Age: 79 Year
  Sex: Female

DRUGS (3)
  1. DONEPEZIL [Suspect]
     Indication: PARKINSON^S DISEASE
  2. DONEPEZIL [Suspect]
     Indication: DEMENTIA
  3. LEVODOPA [Concomitant]

REACTIONS (5)
  - Hypomania [None]
  - Dysarthria [None]
  - Bradykinesia [None]
  - Muscle rigidity [None]
  - Torticollis [None]
